FAERS Safety Report 14835495 (Version 2)
Quarter: 2018Q2

REPORT INFORMATION
  Report Type: Report from Study
  Country: None (occurrence: KR)
  Receive Date: 20180502
  Receipt Date: 20180530
  Transmission Date: 20180711
  Serious: Yes (Hospitalization)
  Sender: FDA-Public Use
  Company Number: KR-ABBVIE-18S-090-2336542-00

PATIENT
  Age: 68 Year
  Sex: Male
  Weight: 73 kg

DRUGS (8)
  1. WINUF PERI [Concomitant]
     Indication: PROPHYLAXIS
     Route: 042
     Dates: start: 20180312, end: 20180312
  2. EXVIERA [Suspect]
     Active Substance: DASABUVIR
     Indication: HEPATITIS C
     Route: 048
     Dates: start: 20180111
  3. MUTERAN [Concomitant]
     Active Substance: ACETYLCYSTEINE
     Indication: PROPHYLAXIS
     Route: 042
     Dates: start: 20180309, end: 20180309
  4. VIEKIRAX [Suspect]
     Active Substance: OMBITASVIR\PARITAPREVIR\RITONAVIR
     Indication: HEPATITIS C
     Route: 048
     Dates: start: 20180111
  5. COUGH SY [Concomitant]
     Indication: PROPHYLAXIS
     Route: 048
     Dates: start: 20180310, end: 20180315
  6. COOLPREP [Concomitant]
     Indication: COLONOSCOPY
     Route: 048
     Dates: start: 20180312, end: 20180312
  7. POFOL [Concomitant]
     Indication: COLONOSCOPY
     Route: 042
     Dates: start: 20180312, end: 20180312
  8. FERRITOP [Concomitant]
     Indication: ANAEMIA
     Route: 048
     Dates: start: 20180314

REACTIONS (1)
  - Diabetes mellitus [Recovered/Resolved]

NARRATIVE: CASE EVENT DATE: 20180208
